FAERS Safety Report 21993852 (Version 1)
Quarter: 2023Q1

REPORT INFORMATION
  Report Type: Report from Study
  Country: US (occurrence: US)
  Receive Date: 20230215
  Receipt Date: 20230215
  Transmission Date: 20230417
  Serious: No
  Sender: FDA-Public Use
  Company Number: US-002147023-NVSC2023US033042

PATIENT
  Sex: Female
  Weight: 61.69 kg

DRUGS (1)
  1. COSENTYX [Suspect]
     Active Substance: SECUKINUMAB
     Indication: Psoriatic arthropathy
     Dosage: UNK
     Route: 065
     Dates: start: 20220716

REACTIONS (8)
  - Cough [Unknown]
  - Diarrhoea [Recovering/Resolving]
  - Nail disorder [Unknown]
  - Movement disorder [Unknown]
  - Osteoarthritis [Unknown]
  - Arthritis [Recovering/Resolving]
  - Tenderness [Unknown]
  - Palpitations [Unknown]
